FAERS Safety Report 16907219 (Version 2)
Quarter: 2021Q3

REPORT INFORMATION
  Report Type: Spontaneous
  Country: JP (occurrence: JP)
  Receive Date: 20191011
  Receipt Date: 20210928
  Transmission Date: 20211014
  Serious: Yes (Hospitalization, Other)
  Sender: FDA-Public Use
  Company Number: JP-TAKEDA-2019TJP014627

PATIENT
  Age: 97 Year
  Sex: Female
  Weight: 41.1 kg

DRUGS (16)
  1. BROTIZOLAM [Interacting]
     Active Substance: BROTIZOLAM
     Indication: INSOMNIA
     Dosage: 0.25 MILLIGRAM, QD
     Route: 048
     Dates: end: 20181102
  2. AMLODIPINE BESILATE [Interacting]
     Active Substance: AMLODIPINE BESYLATE
     Indication: HYPERTENSION
     Dosage: 5 MILLIGRAM, QD
     Route: 048
  3. IMIDAPRIL HYDROCHLORIDE [Interacting]
     Active Substance: IMIDAPRIL HYDROCHLORIDE
     Indication: HYPERTENSION
     Dosage: 5 MILLIGRAM, QD
     Route: 048
     Dates: end: 20181107
  4. MAGMITT [Concomitant]
     Active Substance: MAGNESIUM OXIDE
     Indication: CONSTIPATION
     Dosage: 330 MILLIGRAM, QD
     Route: 048
     Dates: end: 20181118
  5. ROZEREM [Suspect]
     Active Substance: RAMELTEON
     Indication: INSOMNIA
     Dosage: 8 MILLIGRAM, QD
     Route: 048
     Dates: end: 20181106
  6. DONEPEZIL HYDROCHLORIDE. [Suspect]
     Active Substance: DONEPEZIL HYDROCHLORIDE
     Indication: DEMENTIA ALZHEIMER^S TYPE
     Dosage: 5 MILLIGRAM, QD
     Route: 048
     Dates: end: 20181107
  7. AMLODIPINE BESILATE [Interacting]
     Active Substance: AMLODIPINE BESYLATE
     Dosage: 2.5 MILLIGRAM, QD
     Route: 048
     Dates: end: 20181107
  8. FAMOTIDINE. [Concomitant]
     Active Substance: FAMOTIDINE
     Indication: PRODUCT USED FOR UNKNOWN INDICATION
     Dosage: 20 MILLIGRAM, BID
     Route: 048
  9. FEBURIC [Concomitant]
     Active Substance: FEBUXOSTAT
     Indication: HYPERURICAEMIA
     Dosage: 10 MILLIGRAM, QD
     Route: 048
     Dates: end: 20181107
  10. FAMOTIDINE. [Concomitant]
     Active Substance: FAMOTIDINE
     Dosage: 10 MILLIGRAM, QD
     Route: 048
     Dates: end: 20181107
  11. TRICHLORMETHIAZIDE [Interacting]
     Active Substance: TRICHLORMETHIAZIDE
     Indication: HYPERTENSION
     Dosage: 2 MILLIGRAM, QD
     Route: 048
     Dates: end: 20181107
  12. EBRANTIL [Suspect]
     Active Substance: URAPIDIL
     Indication: DYSURIA
     Dosage: 15 MILLIGRAM, BID
     Route: 048
  13. EBRANTIL [Suspect]
     Active Substance: URAPIDIL
     Dosage: 15 MILLIGRAM, QD
     Route: 048
     Dates: end: 20181107
  14. ROZEREM [Suspect]
     Active Substance: RAMELTEON
     Dosage: 4 MILLIGRAM, QD
     Route: 048
     Dates: end: 20181130
  15. ETIZOLAM [Interacting]
     Active Substance: ETIZOLAM
     Indication: INSOMNIA
     Dosage: 0.5 MILLIGRAM, QD
     Route: 048
     Dates: end: 20181106
  16. ETIZOLAM [Interacting]
     Active Substance: ETIZOLAM
     Dosage: 0.25 MILLIGRAM, QD
     Route: 048

REACTIONS (12)
  - Memory impairment [Recovering/Resolving]
  - Humerus fracture [Recovering/Resolving]
  - Abulia [Recovered/Resolved]
  - Blood pressure decreased [Recovered/Resolved]
  - Potentiating drug interaction [Recovered/Resolved]
  - Decubitus ulcer [Recovering/Resolving]
  - Sedation complication [Recovered/Resolved]
  - Fall [Recovering/Resolving]
  - Somnolence [Unknown]
  - Hyperuricaemia [Unknown]
  - Decreased appetite [Recovered/Resolved]
  - Underdose [Unknown]

NARRATIVE: CASE EVENT DATE: 201808
